FAERS Safety Report 5209566-5 (Version None)
Quarter: 2006Q4

REPORT INFORMATION
  Report Type: 
  Country: None (occurrence: None)
  Receive Date: 20061124
  Receipt Date: 20060907
  Transmission Date: 20070319
  Serious: Yes (Hospitalization)
  Sender: FDA-Public Use
  Company Number: 2006-BP-07226BP

PATIENT

DRUGS (3)
  1. AGGRENOX [Suspect]
     Indication: CEREBROVASCULAR ACCIDENT PROPHYLAXIS
     Dosage: SEE TEXT (SEE TEXT, 25MG/200MG, BID), PO
     Route: 048
  2. AGGRENOX [Suspect]
     Indication: PROPHYLAXIS
     Dosage: SEE TEXT (SEE TEXT, 25MG/200MG, BID), PO
     Route: 048
  3. AGGRENOX [Suspect]
     Indication: TRANSIENT ISCHAEMIC ATTACK
     Dosage: SEE TEXT (SEE TEXT, 25MG/200MG, BID), PO
     Route: 048

REACTIONS (1)
  - HAEMORRHAGE INTRACRANIAL [None]
